FAERS Safety Report 6879976-9 (Version None)
Quarter: 2010Q3

REPORT INFORMATION
  Report Type: 
  Country: None (occurrence: None)
  Receive Date: 20100728
  Receipt Date: 20100716
  Transmission Date: 20110219
  Serious: Yes (Hospitalization, Other)
  Sender: FDA-Public Use
  Company Number: PHHY2010MX47044

PATIENT
  Age: 54 Year
  Sex: Female

DRUGS (5)
  1. GALVUS [Suspect]
     Indication: DIABETES MELLITUS
     Dosage: 50 MG, 1 TABLET PER DAY
     Route: 048
     Dates: start: 20091101
  2. DIOVAN HCT [Suspect]
     Indication: HYPERTENSION
     Dosage: HALF TABLET PER DAY
     Route: 048
  3. VIGAMOX [Concomitant]
     Indication: EYE DISORDER
     Dosage: UNK
  4. PREFRIN [Concomitant]
     Indication: EYE DISORDER
     Dosage: UNK
  5. MIRACIL [Concomitant]
     Indication: EYE DISORDER

REACTIONS (2)
  - CATARACT [None]
  - CATARACT OPERATION [None]
